FAERS Safety Report 18239973 (Version 2)
Quarter: 2021Q1

REPORT INFORMATION
  Report Type: Report from Study
  Country: US (occurrence: US)
  Receive Date: 20200908
  Receipt Date: 20210107
  Transmission Date: 20210419
  Serious: Yes (Other)
  Sender: FDA-Public Use
  Company Number: US-SA-2020SA240747

PATIENT

DRUGS (10)
  1. PROVIGIL [Concomitant]
     Active Substance: MODAFINIL
  2. BACLOFEN. [Concomitant]
     Active Substance: BACLOFEN
  3. TREXIMET [Concomitant]
     Active Substance: NAPROXEN SODIUM\SUMATRIPTAN SUCCINATE
  4. XANAX [Concomitant]
     Active Substance: ALPRAZOLAM
  5. TERIFLUNOMIDE. [Suspect]
     Active Substance: TERIFLUNOMIDE
     Indication: MULTIPLE SCLEROSIS
     Dosage: 14 MG, QD
     Route: 048
     Dates: start: 20140825
  6. PRISTIQ EXTENDED?RELEASE [Concomitant]
     Active Substance: DESVENLAFAXINE SUCCINATE
     Dosage: 1 DF, QD
  7. ADDERALL [Concomitant]
     Active Substance: AMPHETAMINE ASPARTATE\AMPHETAMINE SULFATE\DEXTROAMPHETAMINE SACCHARATE\DEXTROAMPHETAMINE SULFATE
  8. NEURONTIN [Concomitant]
     Active Substance: GABAPENTIN
  9. HYDROCODONE BITARTRATE AND ACETAMINOPHEN [Concomitant]
     Active Substance: ACETAMINOPHEN\HYDROCODONE BITARTRATE
  10. LEXAPRO [Concomitant]
     Active Substance: ESCITALOPRAM OXALATE

REACTIONS (16)
  - Cognitive disorder [Not Recovered/Not Resolved]
  - Fall [Unknown]
  - Vitamin B12 deficiency [Unknown]
  - Unevaluable event [Not Recovered/Not Resolved]
  - Blood creatine phosphokinase abnormal [Unknown]
  - Eye pain [Unknown]
  - Loss of consciousness [Unknown]
  - Anaemia [Unknown]
  - Musculoskeletal discomfort [Unknown]
  - Vitamin D deficiency [Unknown]
  - Memory impairment [Not Recovered/Not Resolved]
  - Throat clearing [Not Recovered/Not Resolved]
  - Depression [Unknown]
  - Dizziness [Unknown]
  - Discomfort [Unknown]
  - Aphasia [Not Recovered/Not Resolved]

NARRATIVE: CASE EVENT DATE: 2020
